FAERS Safety Report 24793282 (Version 1)
Quarter: 2024Q4

REPORT INFORMATION
  Report Type: Spontaneous
  Country: US (occurrence: None)
  Receive Date: 20241231
  Receipt Date: 20241231
  Transmission Date: 20250115
  Serious: No
  Sender: Public
  Company Number: None

PATIENT
  Age: 40 Year
  Sex: Male

DRUGS (2)
  1. TALTZ [Suspect]
     Active Substance: IXEKIZUMAB
     Indication: Psoriatic arthropathy
     Dosage: INJECT 160MG (2 PEN2) SUBCUTANEOUSLY AT WEEK 0 THEN 80MG (1PEN) AT WEEK 2  AS  DIRECTED.
     Route: 058
     Dates: start: 202409
  2. TALTZ [Suspect]
     Active Substance: IXEKIZUMAB
     Dosage: OTHER FREQUENCY : AT WEEK 2;?
     Route: 058

REACTIONS (1)
  - Pneumonia [None]
